FAERS Safety Report 8919438 (Version 1)
Quarter: 2012Q4

REPORT INFORMATION
  Report Type: 
  Country: US (occurrence: US)
  Receive Date: 20121121
  Receipt Date: 20121121
  Transmission Date: 20130627
  Serious: No
  Sender: FDA-Public Use
  Company Number: US-PFIZER INC-2012288086

PATIENT
  Age: 66 Year
  Sex: Male

DRUGS (2)
  1. INLYTA [Suspect]
     Indication: CARCINOMA KIDNEY
     Dosage: 7 mg (1 tablet of 5 mg plus two tablets of 1 mg), 2x/day
     Route: 048
     Dates: start: 20120725
  2. INLYTA [Suspect]
     Dosage: 7 mg (1 tablet of 5 mg plus two tablets of 1 mg), 2x/day
     Route: 048
     Dates: start: 20120725

REACTIONS (2)
  - Disease progression [Unknown]
  - Renal cell carcinoma [Unknown]
